FAERS Safety Report 15778023 (Version 1)
Quarter: 2018Q4

REPORT INFORMATION
  Report Type: Spontaneous
  Country: US (occurrence: US)
  Receive Date: 20181231
  Receipt Date: 20181231
  Transmission Date: 20190205
  Serious: No
  Sender: FDA-Public Use
  Company Number: US-GE HEALTHCARE LIFE SCIENCES-2018CSU004747

PATIENT
  Age: 51 Year
  Sex: Female
  Weight: 69 kg

DRUGS (1)
  1. OMNIPAQUE [Suspect]
     Active Substance: IOHEXOL
     Indication: CORONARY ARTERY DISEASE
     Dosage: 95 ML, SINGLE
     Route: 042
     Dates: start: 20181109, end: 20181109

REACTIONS (1)
  - Urticaria [Unknown]

NARRATIVE: CASE EVENT DATE: 20181109
